FAERS Safety Report 22949187 (Version 8)
Quarter: 2023Q4

REPORT INFORMATION
  Report Type: Spontaneous
  Country: US (occurrence: US)
  Receive Date: 20230915
  Receipt Date: 20231213
  Transmission Date: 20240109
  Serious: Yes (Other)
  Sender: FDA-Public Use
  Company Number: US-PFIZER INC-202100934317

PATIENT
  Age: 67 Year
  Sex: Female
  Weight: 73.94 kg

DRUGS (2)
  1. PREMARIN [Suspect]
     Active Substance: ESTROGENS, CONJUGATED
     Dosage: INSERT 1 G (0.625 MG/G) THREE TIMES A WEEK
     Route: 067
  2. AMLODIPINE [Concomitant]
     Active Substance: AMLODIPINE BESYLATE

REACTIONS (7)
  - Neuropathy peripheral [Unknown]
  - Thyroid disorder [Unknown]
  - Diplopia [Unknown]
  - Nystagmus [Unknown]
  - Vision blurred [Unknown]
  - Off label use [Unknown]
  - Dyspnoea [Unknown]

NARRATIVE: CASE EVENT DATE: 20231207
